FAERS Safety Report 18756493 (Version 1)
Quarter: 2021Q1

REPORT INFORMATION
  Report Type: Spontaneous
  Country: US (occurrence: US)
  Receive Date: 20210116
  Receipt Date: 20210116
  Transmission Date: 20210419
  Serious: Yes (Hospitalization)
  Sender: FDA-Public Use
  Company Number: None

PATIENT
  Age: 84 Year
  Sex: Male

DRUGS (18)
  1. COMBIGAN SOL [Concomitant]
  2. FLUTICASONE SPR [Concomitant]
  3. FINASTERIDE. [Concomitant]
     Active Substance: FINASTERIDE
  4. FLUOXETINE [Concomitant]
     Active Substance: FLUOXETINE HYDROCHLORIDE
  5. TAMSULOSIN [Concomitant]
     Active Substance: TAMSULOSIN
  6. TADALAFIL 20MG TAB [Suspect]
     Active Substance: TADALAFIL
     Indication: PULMONARY ARTERIAL HYPERTENSION
     Route: 048
     Dates: start: 20190325
  7. AMBRISENTAN 10MG TAB [Suspect]
     Active Substance: AMBRISENTAN
     Indication: PULMONARY ARTERIAL HYPERTENSION
     Route: 048
  8. DONEPEZIL. [Suspect]
     Active Substance: DONEPEZIL
  9. ALBUTEROL NEB [Suspect]
     Active Substance: ALBUTEROL
  10. ASPIRIN. [Suspect]
     Active Substance: ASPIRIN
  11. MIDODRINE [Concomitant]
     Active Substance: MIDODRINE
  12. VITAMIN C [Concomitant]
     Active Substance: ASCORBIC ACID
  13. FAMOTIDINE. [Suspect]
     Active Substance: FAMOTIDINE
  14. METFORMIN [Concomitant]
     Active Substance: METFORMIN HYDROCHLORIDE
  15. ATORVASTATIN [Suspect]
     Active Substance: ATORVASTATIN
  16. ELIQUIS [Suspect]
     Active Substance: APIXABAN
  17. LISINOPRIL. [Concomitant]
     Active Substance: LISINOPRIL
  18. PAZEO [Concomitant]
     Active Substance: OLOPATADINE HYDROCHLORIDE

REACTIONS (1)
  - Pulmonary oedema [None]

NARRATIVE: CASE EVENT DATE: 20210114
